FAERS Safety Report 25452555 (Version 1)
Quarter: 2025Q2

REPORT INFORMATION
  Report Type: Spontaneous
  Country: IN (occurrence: IN)
  Receive Date: 20250618
  Receipt Date: 20250618
  Transmission Date: 20250716
  Serious: Yes (Other)
  Sender: PFIZER
  Company Number: IN-PFIZER INC-202500024328

PATIENT
  Age: 82 Year
  Sex: Female

DRUGS (7)
  1. LORLATINIB [Suspect]
     Active Substance: LORLATINIB
     Indication: Lung adenocarcinoma stage IV
     Dosage: 100 MG, 1X/DAY
     Route: 048
     Dates: start: 202412
  2. RANITIDINE HYDROCHLORIDE [Concomitant]
     Active Substance: RANITIDINE HYDROCHLORIDE
     Dosage: 150 MG, 1X/DAY (BED TIME)
  3. TELMA AM [Concomitant]
     Dosage: UNK UNK, 1X/DAY
  4. ATORVASTATIN CALCIUM [Concomitant]
     Active Substance: ATORVASTATIN CALCIUM
     Dosage: 10 MG, 1X/DAY (BED TIME)
  5. PRUVICT [Concomitant]
     Dosage: 2 MG, 1X/DAY
  6. LEVOSULPIRIDE [Concomitant]
     Active Substance: LEVOSULPIRIDE
     Dosage: 25 MG, 2X/DAY
  7. CREMAFFIN PLUS [Concomitant]
     Dosage: UNK UNK, 1X/DAY (4TSF AT NIGHT)

REACTIONS (8)
  - Metastasis [Unknown]
  - Thyroglobulin increased [Unknown]
  - Bronchitis [Recovering/Resolving]
  - Cough [Unknown]
  - Dyspnoea [Unknown]
  - Chest pain [Unknown]
  - Limb discomfort [Not Recovered/Not Resolved]
  - Epistaxis [Unknown]
